FAERS Safety Report 11692098 (Version 1)
Quarter: 2015Q4

REPORT INFORMATION
  Report Type: Spontaneous
  Country: US (occurrence: US)
  Receive Date: 20151103
  Receipt Date: 20151103
  Transmission Date: 20160304
  Serious: No
  Sender: FDA-Public Use
  Company Number: US-ASTRAZENECA-2015SF03551

PATIENT
  Age: 71 Year
  Sex: Male
  Weight: 102.1 kg

DRUGS (18)
  1. BYDUREON [Suspect]
     Active Substance: EXENATIDE
     Indication: TYPE 2 DIABETES MELLITUS
     Route: 065
     Dates: start: 2015
  2. TRIAMCINOLONE [Concomitant]
     Active Substance: TRIAMCINOLONE
  3. TERAZOSIN [Concomitant]
     Active Substance: TERAZOSIN\TERAZOSIN HYDROCHLORIDE
  4. CLOPIDOGREL [Concomitant]
     Active Substance: CLOPIDOGREL BISULFATE
  5. CHLORTHALIDONE. [Concomitant]
     Active Substance: CHLORTHALIDONE
  6. VITAMINS NOS [Concomitant]
     Active Substance: VITAMINS
  7. METFORMIN [Concomitant]
     Active Substance: METFORMIN HYDROCHLORIDE
     Indication: DIABETES MELLITUS
  8. CQ10 [Concomitant]
     Active Substance: UBIDECARENONE
  9. LEVEMIR [Concomitant]
     Active Substance: INSULIN DETEMIR
     Indication: DIABETES MELLITUS
     Dosage: AT NIGHT
  10. LOVASTATIN. [Concomitant]
     Active Substance: LOVASTATIN
  11. CLONIDINE. [Concomitant]
     Active Substance: CLONIDINE
     Indication: CARDIAC DISORDER
  12. ASPRIRIN [Concomitant]
     Indication: CARDIAC DISORDER
  13. CARVEDILOL. [Concomitant]
     Active Substance: CARVEDILOL
  14. FISH OIL [Concomitant]
     Active Substance: FISH OIL
  15. CRESTOR [Suspect]
     Active Substance: ROSUVASTATIN CALCIUM
     Indication: BLOOD TRIGLYCERIDES INCREASED
     Route: 048
  16. BENEFIBRIL [Concomitant]
  17. GLIPIZIDE. [Concomitant]
     Active Substance: GLIPIZIDE
  18. VITAMIN D3 [Concomitant]
     Active Substance: CHOLECALCIFEROL
     Dosage: DAILY

REACTIONS (6)
  - Exfoliative rash [Unknown]
  - Skin exfoliation [Unknown]
  - Rash pruritic [Unknown]
  - Weight decreased [Unknown]
  - Blood triglycerides increased [Unknown]
  - Injection site nodule [Unknown]
